FAERS Safety Report 8518372-5 (Version None)
Quarter: 2012Q3

REPORT INFORMATION
  Report Type: 
  Country: None (occurrence: None)
  Receive Date: 20120718
  Receipt Date: 20120703
  Transmission Date: 20120928
  Serious: Yes (Hospitalization)
  Sender: FDA-Public Use
  Company Number: US-JNJFOC-20120707962

PATIENT
  Age: 62 Year
  Sex: Female
  Weight: 90.7 kg

DRUGS (17)
  1. BUSPIRONE HCL [Concomitant]
     Indication: STRESS
     Route: 048
     Dates: start: 20111129
  2. CITALOPRAM HYDROBROMIDE [Concomitant]
     Indication: ANXIETY
     Route: 048
     Dates: start: 20100525
  3. PHENTERMINE HYDROCHLORIDE [Concomitant]
     Indication: WEIGHT DECREASED
     Route: 048
     Dates: start: 20110811
  4. NITRO-DUR [Concomitant]
     Indication: CHEST PAIN
     Route: 060
     Dates: start: 20110318
  5. ACETYLSALICYLIC ACID SRT [Concomitant]
     Indication: PROPHYLAXIS
     Route: 048
     Dates: start: 20120109
  6. RANOLAZINE [Concomitant]
     Indication: CHEST DISCOMFORT
     Route: 048
     Dates: start: 20110408
  7. NEXIUM [Concomitant]
     Indication: PROPHYLAXIS
     Route: 048
     Dates: end: 20120627
  8. IBUPROFEN [Suspect]
     Indication: OSTEOARTHRITIS
     Route: 048
     Dates: end: 20120627
  9. CLOPIDOGREL [Concomitant]
     Indication: CORONARY ARTERY DISEASE
     Route: 048
     Dates: start: 20101012
  10. METOPROLOL SUCCINATE [Concomitant]
     Indication: HYPERTENSION
     Route: 048
     Dates: start: 20100820
  11. FENOFIBRATE [Concomitant]
     Indication: HYPERCHOLESTEROLAEMIA
     Route: 048
     Dates: start: 20111216
  12. KLOR-CON [Concomitant]
     Indication: SUPPLEMENTATION THERAPY
     Route: 048
     Dates: start: 20111130
  13. ROSUVASTATIN [Concomitant]
     Indication: HYPERCHOLESTEROLAEMIA
     Route: 048
     Dates: start: 20100810
  14. MIRAPEX [Concomitant]
     Indication: RESTLESS LEGS SYNDROME
     Route: 048
     Dates: start: 20110912
  15. IBUPROFEN [Suspect]
     Indication: RHEUMATOID ARTHRITIS
     Route: 048
     Dates: end: 20120627
  16. FUROSEMIDE [Concomitant]
     Indication: OEDEMA
     Dosage: 2 TABLETS ONCE IN MORNING
     Route: 048
     Dates: start: 20111129
  17. LEVOCETIRIZINE DIHYDROCHLORIDE [Concomitant]
     Indication: SEASONAL ALLERGY
     Route: 048
     Dates: start: 20110323

REACTIONS (1)
  - SYNCOPE [None]
